FAERS Safety Report 8190028-0 (Version None)
Quarter: 2012Q1

REPORT INFORMATION
  Report Type: 
  Country: None (occurrence: None)
  Receive Date: 20120305
  Receipt Date: 20120217
  Transmission Date: 20120608
  Serious: Yes (Hospitalization)
  Sender: FDA-Public Use
  Company Number: SAN_00042_2012

PATIENT
  Age: 49 Year
  Sex: Male
  Weight: 74 kg

DRUGS (5)
  1. GLYBURIDE [Suspect]
     Indication: PRODUCT USED FOR UNKNOWN INDICATION
     Dosage: (350 MG 1X, NOT RECOMMENDED DOSE ORAL)
     Route: 048
  2. VARDENAFIL HYDROCHLORIDE (LEVITRA) [Concomitant]
  3. LISINOPRIL [Concomitant]
  4. METFORMIN HCL [Suspect]
     Indication: PRODUCT USED FOR UNKNOWN INDICATION
     Dosage: (52 G 1X, NOT RECOMMENDED DOSE ORAL)
     Route: 048
  5. GEMFIBROZIL [Concomitant]

REACTIONS (25)
  - LACTIC ACIDOSIS [None]
  - HYPERGLYCAEMIA [None]
  - PYREXIA [None]
  - OTITIS EXTERNA [None]
  - NECROSIS [None]
  - HYPOGLYCAEMIA [None]
  - RESPIRATORY FAILURE [None]
  - OTOTOXICITY [None]
  - RENAL FAILURE ACUTE [None]
  - THROMBOCYTOPENIA [None]
  - DEAFNESS NEUROSENSORY [None]
  - TOXICITY TO VARIOUS AGENTS [None]
  - UNRESPONSIVE TO STIMULI [None]
  - NAUSEA [None]
  - LEUKOCYTOSIS [None]
  - DIARRHOEA [None]
  - TYMPANIC MEMBRANE DISORDER [None]
  - HYPOPERFUSION [None]
  - INTENTIONAL OVERDOSE [None]
  - STAPHYLOCOCCUS TEST POSITIVE [None]
  - SUICIDE ATTEMPT [None]
  - CONTINUOUS HAEMODIAFILTRATION [None]
  - HYPERNATRAEMIA [None]
  - HYPOTENSION [None]
  - CEREBRAL ISCHAEMIA [None]
